FAERS Safety Report 7646031-X (Version None)
Quarter: 2011Q3

REPORT INFORMATION
  Report Type: 
  Country: None (occurrence: None)
  Receive Date: 20110801
  Receipt Date: 20110721
  Transmission Date: 20111222
  Serious: Yes (Hospitalization)
  Sender: FDA-Public Use
  Company Number: JP-BRISTOL-MYERS SQUIBB COMPANY-15905870

PATIENT
  Age: 63 Year
  Sex: Male

DRUGS (5)
  1. METFORMIN HCL [Suspect]
     Indication: DIABETES MELLITUS
     Route: 048
     Dates: start: 20110401, end: 20110629
  2. BEPRICOR [Suspect]
     Dates: start: 20110101
  3. GLIMICRON [Concomitant]
  4. WARFARIN SODIUM [Concomitant]
  5. CANDESARTAN CILEXETIL [Concomitant]

REACTIONS (1)
  - HEPATIC FUNCTION ABNORMAL [None]
